FAERS Safety Report 24015366 (Version 1)
Quarter: 2024Q2

REPORT INFORMATION
  Report Type: Report from Study
  Country: US (occurrence: US)
  Receive Date: 20240626
  Receipt Date: 20240626
  Transmission Date: 20240715
  Serious: Yes (Other)
  Sender: FDA-Public Use
  Company Number: US-REGENERON PHARMACEUTICALS, INC.-2024-087445

PATIENT
  Sex: Female

DRUGS (1)
  1. EVINACUMAB [Suspect]
     Active Substance: EVINACUMAB
     Indication: Product used for unknown indication
     Dosage: 1335 MG, MONTHLY
     Route: 042
     Dates: end: 20240604

REACTIONS (14)
  - Arrhythmia [Unknown]
  - Fatigue [Unknown]
  - Myalgia [Unknown]
  - Palpitations [Unknown]
  - Tachycardia [Unknown]
  - Chest discomfort [Unknown]
  - Cough [Unknown]
  - Seasonal allergy [Unknown]
  - Upper-airway cough syndrome [Unknown]
  - Headache [Unknown]
  - Influenza like illness [Unknown]
  - Dizziness [Unknown]
  - Nasal congestion [Unknown]
  - Asthenia [Unknown]

NARRATIVE: CASE EVENT DATE: 20240101
